FAERS Safety Report 8097953-X (Version None)
Quarter: 2012Q1

REPORT INFORMATION
  Report Type: 
  Country: None (occurrence: None)
  Receive Date: 20120128
  Receipt Date: 20110728
  Transmission Date: 20120608
  Serious: No
  Sender: FDA-Public Use
  Company Number: US-ABBOTT-11P-163-0843226-00

PATIENT
  Sex: Female

DRUGS (4)
  1. HUMIRA [Suspect]
     Indication: CROHN'S DISEASE
  2. HUMIRA [Suspect]
     Indication: COLITIS ULCERATIVE
     Dates: start: 20100701
  3. ACETAMINOPHEN [Concomitant]
     Indication: PAIN
  4. MIRALAX [Concomitant]
     Indication: CROHN'S DISEASE

REACTIONS (3)
  - DRUG EFFECT DECREASED [None]
  - PAIN [None]
  - MUSCLE SPASMS [None]
